FAERS Safety Report 11520001 (Version 1)
Quarter: 2015Q3

REPORT INFORMATION
  Report Type: Spontaneous
  Country: US (occurrence: US)
  Receive Date: 20150918
  Receipt Date: 20150918
  Transmission Date: 20151125
  Serious: No
  Sender: FDA-Public Use
  Company Number: US-RB-068762-14

PATIENT

DRUGS (1)
  1. MUCINEX MAXIMUM STRENGTH [Suspect]
     Active Substance: GUAIFENESIN
     Indication: CHRONIC OBSTRUCTIVE PULMONARY DISEASE
     Dosage: 1200MG. DOSING: 3-4 DOSES PER DAY,FREQUENCY UNK
     Route: 065

REACTIONS (4)
  - Product use issue [Unknown]
  - No adverse event [Unknown]
  - Incorrect drug administration duration [Unknown]
  - Overdose [Unknown]
